FAERS Safety Report 25708883 (Version 1)
Quarter: 2025Q3

REPORT INFORMATION
  Report Type: Spontaneous
  Country: ZA (occurrence: ZA)
  Receive Date: 20250821
  Receipt Date: 20250821
  Transmission Date: 20251021
  Serious: Yes (Hospitalization)
  Sender: DOUGLAS PHARMACEUTICALS
  Company Number: ZA-DOUGLAS PHARMACEUTICALS US-2025DGL00311

PATIENT
  Age: 40 Year
  Sex: Male

DRUGS (4)
  1. CLOZAPINE [Suspect]
     Active Substance: CLOZAPINE
     Indication: Psychotic disorder
     Dosage: 25 MG, 1X/DAY (AT NIGHT)
  2. CLOZAPINE [Suspect]
     Active Substance: CLOZAPINE
  3. CLOZAPINE [Suspect]
     Active Substance: CLOZAPINE
     Dosage: 150 MG, 2X/DAY (MANE AND NOCTE)
  4. CLOZAPINE [Suspect]
     Active Substance: CLOZAPINE
     Dosage: 400 MG, 1X/DAY (150 MG MANE AND 250 MG NOCTE)

REACTIONS (1)
  - Dysphemia [Recovered/Resolved]
